FAERS Safety Report 6429453-4 (Version None)
Quarter: 2009Q4

REPORT INFORMATION
  Report Type: 
  Country: None (occurrence: None)
  Receive Date: 20091102
  Receipt Date: 20091026
  Transmission Date: 20100525
  Serious: Yes (Hospitalization, Other)
  Sender: FDA-Public Use
  Company Number: JPI-P-008943

PATIENT
  Age: 51 Year
  Sex: Female

DRUGS (4)
  1. XYREM [Suspect]
     Indication: FIBROMYALGIA
     Dosage: 6 GM (3 MG, 2 IN 1 D), ORAL; 10 GM (5 GM, 2 IN 1 D), ORAL
     Route: 048
     Dates: start: 20060629
  2. XYREM [Suspect]
     Indication: SLEEP DISORDER
     Dosage: 6 GM (3 MG, 2 IN 1 D), ORAL; 10 GM (5 GM, 2 IN 1 D), ORAL
     Route: 048
     Dates: start: 20060629
  3. XYREM [Suspect]
     Indication: FIBROMYALGIA
     Dosage: 6 GM (3 MG, 2 IN 1 D), ORAL; 10 GM (5 GM, 2 IN 1 D), ORAL
     Route: 048
     Dates: start: 20091013
  4. XYREM [Suspect]
     Indication: SLEEP DISORDER
     Dosage: 6 GM (3 MG, 2 IN 1 D), ORAL; 10 GM (5 GM, 2 IN 1 D), ORAL
     Route: 048
     Dates: start: 20091013

REACTIONS (3)
  - ANKLE FRACTURE [None]
  - ARTHROPATHY [None]
  - FALL [None]
